FAERS Safety Report 9818807 (Version 2)
Quarter: 2014Q1

REPORT INFORMATION
  Report Type: Spontaneous
  Country: US (occurrence: None)
  Receive Date: 20131223
  Receipt Date: 20140228
  Transmission Date: 20141002
  Serious: No
  Sender: FDA-Public Use
  Company Number: 222425

PATIENT
  Sex: Female

DRUGS (4)
  1. PICATO GEL [Suspect]
     Indication: ACTINIC KERATOSIS
     Route: 061
     Dates: start: 20130521, end: 20130521
  2. ATENOLOL [Concomitant]
  3. NORVASC (AMLODIPINE BESILATE) [Concomitant]
  4. EVISTA (RALOXIFENE HYDROCHLORIDE) [Concomitant]

REACTIONS (13)
  - Application site erythema [None]
  - Swollen tongue [None]
  - Tongue disorder [None]
  - Application site swelling [None]
  - Incorrect drug administration duration [None]
  - Inappropriate schedule of drug administration [None]
  - Hypersensitivity [None]
  - Dyspnoea [None]
  - Erythema [None]
  - Swelling [None]
  - Wheezing [None]
  - Heart rate increased [None]
  - Rash [None]
